FAERS Safety Report 24695963 (Version 1)
Quarter: 2024Q4

REPORT INFORMATION
  Report Type: Report from Study
  Country: AR (occurrence: AR)
  Receive Date: 20241204
  Receipt Date: 20241204
  Transmission Date: 20250115
  Serious: Yes (Hospitalization)
  Sender: ROCHE
  Company Number: AR-ROCHE-10000143984

PATIENT
  Sex: Male
  Weight: 1.94 kg

DRUGS (1)
  1. EVRYSDI [Suspect]
     Active Substance: RISDIPLAM
     Indication: Product used for unknown indication
     Route: 064

REACTIONS (4)
  - Underweight [Unknown]
  - Hypoglycaemia [Unknown]
  - Premature baby [Unknown]
  - Foetal exposure during pregnancy [Unknown]

NARRATIVE: CASE EVENT DATE: 20240918
